FAERS Safety Report 10873290 (Version 2)
Quarter: 2015Q1

REPORT INFORMATION
  Report Type: Spontaneous
  Country: JP (occurrence: JP)
  Receive Date: 20150227
  Receipt Date: 20150227
  Transmission Date: 20150721
  Serious: Yes (Other)
  Sender: FDA-Public Use
  Company Number: JP-JNJFOC-20150217253

PATIENT
  Age: 16 Year
  Sex: Male

DRUGS (2)
  1. NAUZELIN [Concomitant]
     Active Substance: DOMPERIDONE
     Indication: NAUSEA
     Route: 065
  2. TRAMCET [Suspect]
     Active Substance: ACETAMINOPHEN\TRAMADOL
     Indication: PAIN
     Dosage: 1 DOSE TWICE PER DAY
     Route: 048
     Dates: start: 201408

REACTIONS (6)
  - Pyrexia [Recovered/Resolved]
  - Nausea [Unknown]
  - Face injury [Recovered/Resolved]
  - Fall [Recovered/Resolved]
  - Seizure [Recovered/Resolved]
  - Loss of consciousness [Recovered/Resolved]

NARRATIVE: CASE EVENT DATE: 20150217
